FAERS Safety Report 17727894 (Version 2)
Quarter: 2020Q4

REPORT INFORMATION
  Report Type: Spontaneous
  Country: US (occurrence: US)
  Receive Date: 20200430
  Receipt Date: 20201009
  Transmission Date: 20210113
  Serious: No
  Sender: FDA-Public Use
  Company Number: US-PFIZER INC-2020173708

PATIENT
  Age: 82 Year
  Sex: Female

DRUGS (1)
  1. IBRANCE [Suspect]
     Active Substance: PALBOCICLIB
     Dosage: 125 MG, CYCLIC (21 DAYS, 7 DAYS OFF)
     Dates: start: 20200601

REACTIONS (4)
  - Decreased appetite [Unknown]
  - Gingival pain [Unknown]
  - Ageusia [Unknown]
  - Glossodynia [Unknown]
